FAERS Safety Report 17069396 (Version 1)
Quarter: 2019Q4

REPORT INFORMATION
  Report Type: Spontaneous
  Country: US (occurrence: US)
  Receive Date: 20191125
  Receipt Date: 20191125
  Transmission Date: 20200122
  Serious: No
  Sender: FDA-Public Use
  Company Number: US-JNJFOC-20191131102

PATIENT
  Age: 27 Year
  Sex: Female
  Weight: 68.1 kg

DRUGS (1)
  1. WOMENS ROGAINE UNSCENTED [Suspect]
     Active Substance: MINOXIDIL
     Indication: ALOPECIA
     Dosage: SPRAYED THE EVERYWHERE ALL OVER THE HEAD EVERY SINGLE NIGHT
     Route: 061
     Dates: start: 20191101, end: 20191115

REACTIONS (3)
  - Wrong technique in product usage process [Unknown]
  - Alopecia [Recovering/Resolving]
  - Incorrect dose administered [Unknown]

NARRATIVE: CASE EVENT DATE: 20191101
